FAERS Safety Report 20797554 (Version 1)
Quarter: 2022Q2

REPORT INFORMATION
  Report Type: Spontaneous
  Country: FR (occurrence: FR)
  Receive Date: 20220506
  Receipt Date: 20220506
  Transmission Date: 20220721
  Serious: Yes (Hospitalization)
  Sender: FDA-Public Use
  Company Number: None

PATIENT
  Age: 32 Year
  Sex: Female
  Weight: 60 kg

DRUGS (6)
  1. MORPHINE SULFATE [Suspect]
     Active Substance: MORPHINE SULFATE
     Indication: Intentional overdose
     Dosage: NP
     Route: 048
     Dates: start: 20220305, end: 20220305
  2. CODEINE [Suspect]
     Active Substance: CODEINE
     Indication: Intentional overdose
     Dosage: NP
     Route: 048
     Dates: start: 20220305, end: 20220305
  3. DOLIPRANE [Suspect]
     Active Substance: ACETAMINOPHEN
     Indication: Intentional overdose
     Dosage: NP
     Route: 048
     Dates: start: 20220305, end: 20220305
  4. TRAMADOL [Suspect]
     Active Substance: TRAMADOL
     Indication: Intentional overdose
     Dosage: 50 MG
     Route: 048
     Dates: start: 20220305, end: 20220305
  5. TROPATEPINE HYDROCHLORIDE [Suspect]
     Active Substance: TROPATEPINE HYDROCHLORIDE
     Indication: Intentional overdose
     Dosage: 30 DOSAGE FORM
     Route: 048
     Dates: start: 20220305, end: 20220305
  6. VALPROATE SODIUM [Suspect]
     Active Substance: VALPROATE SODIUM
     Indication: Intentional overdose
     Dosage: 25 DOSAGE FORM
     Route: 048
     Dates: start: 20220305, end: 20220305

REACTIONS (3)
  - Coma [Recovered/Resolved]
  - Poisoning deliberate [Recovered/Resolved]
  - Vomiting [Recovered/Resolved]

NARRATIVE: CASE EVENT DATE: 20220305
